FAERS Safety Report 4488085-8 (Version None)
Quarter: 2004Q4

REPORT INFORMATION
  Report Type: 
  Country: None (occurrence: None)
  Receive Date: 20041028
  Receipt Date: 20041018
  Transmission Date: 20050328
  Serious: Yes (Other)
  Sender: FDA-Public Use
  Company Number: JP-GLAXOSMITHKLINE-B0349012A

PATIENT
  Age: 60 Year
  Sex: Male

DRUGS (2)
  1. ZEFIX [Suspect]
     Indication: HEPATITIS B
     Dosage: 100MG PER DAY
     Route: 048
     Dates: start: 20040406
  2. NATRIX [Concomitant]
     Dosage: 2MG PER DAY
     Route: 048
     Dates: start: 20040128

REACTIONS (1)
  - DIABETES MELLITUS [None]
